FAERS Safety Report 6242416-7 (Version None)
Quarter: 2009Q2

REPORT INFORMATION
  Report Type: 
  Country: None (occurrence: None)
  Receive Date: 20090622
  Receipt Date: 20090622
  Transmission Date: 20091009
  Serious: Yes (Other)
  Sender: FDA-Public Use
  Company Number: None

PATIENT
  Age: 39 Year
  Sex: Female
  Weight: 63.5036 kg

DRUGS (4)
  1. VIVELLE-DOT [Suspect]
     Indication: INFERTILITY
     Dosage: .1MG TO .3MG PER DAY TRANSDERMAL
     Route: 062
     Dates: start: 20090306, end: 20090317
  2. LUPRON [Concomitant]
  3. ASPIRIN [Concomitant]
  4. BIRTH CONTROLL PILL [Concomitant]

REACTIONS (2)
  - BREAST CANCER STAGE II [None]
  - OFF LABEL USE [None]
